FAERS Safety Report 8211080-X (Version None)
Quarter: 2012Q1

REPORT INFORMATION
  Report Type: 
  Country: None (occurrence: None)
  Receive Date: 20120315
  Receipt Date: 20120312
  Transmission Date: 20120608
  Serious: No
  Sender: FDA-Public Use
  Company Number: PHEH2012US005835

PATIENT
  Sex: Male
  Weight: 104.31 kg

DRUGS (7)
  1. VERAPAMIL [Concomitant]
  2. PRAMIPEXOLE DIHYDROCHLORIDE [Concomitant]
  3. TASIGNA [Suspect]
     Dosage: 400 MG, BID
     Route: 048
  4. DIOVAN [Concomitant]
  5. LEVOTHYROXINE SODIUM [Concomitant]
  6. GABAPENTIN [Concomitant]
  7. DIGOXIN [Concomitant]

REACTIONS (3)
  - DRY SKIN [None]
  - AGEUSIA [None]
  - PRURITUS [None]
